FAERS Safety Report 10153513 (Version 1)
Quarter: 2014Q2

REPORT INFORMATION
  Report Type: Spontaneous
  Country: US (occurrence: US)
  Receive Date: 20140505
  Receipt Date: 20140505
  Transmission Date: 20141212
  Serious: Yes (Other)
  Sender: FDA-Public Use
  Company Number: PHEH2014US008785

PATIENT
  Sex: Male

DRUGS (4)
  1. CLOZARIL [Suspect]
     Dosage: 800 MG, DAILY
  2. PROZAC [Concomitant]
     Indication: DEPRESSION
     Dosage: 40 MG, UNK
  3. VITAMIN D [Concomitant]
     Dosage: UNK
  4. FISH OIL [Concomitant]
     Dosage: UNK

REACTIONS (2)
  - Depression [Unknown]
  - Gait disturbance [Unknown]
